FAERS Safety Report 7283458-2 (Version None)
Quarter: 2011Q1

REPORT INFORMATION
  Report Type: 
  Country: None (occurrence: None)
  Receive Date: 20110209
  Receipt Date: 20110207
  Transmission Date: 20110831
  Serious: Yes (Death, Other)
  Sender: FDA-Public Use
  Company Number: BE-ABBOTT-11P-013-0700203-00

PATIENT
  Sex: Male
  Weight: 76 kg

DRUGS (2)
  1. BICALUTAMIDE [Concomitant]
     Indication: PRODUCT USED FOR UNKNOWN INDICATION
     Dates: start: 20080620
  2. LUCRIN DEPOT 11.25 MG [Suspect]
     Indication: PROSTATE CANCER
     Dates: start: 20080620

REACTIONS (2)
  - DISEASE PROGRESSION [None]
  - METASTASIS [None]
